FAERS Safety Report 9677655 (Version 2)
Quarter: 2014Q1

REPORT INFORMATION
  Report Type: Spontaneous
  Country: ES (occurrence: ES)
  Receive Date: 20131108
  Receipt Date: 20140108
  Transmission Date: 20141002
  Serious: Yes (Death, Hospitalization)
  Sender: FDA-Public Use
  Company Number: ES-ASTELLAS-2013EU009592

PATIENT
  Age: 59 Year
  Sex: Male

DRUGS (2)
  1. PROGRAF [Suspect]
     Dosage: 1.25 MG/DAY, UNKNOWN/D
     Route: 065
     Dates: start: 20081222
  2. PROGRAF [Suspect]
     Dosage: UNK MG/DAY, UNKNOWN/D
     Route: 065
     Dates: end: 20120523

REACTIONS (9)
  - Off label use [Unknown]
  - Haemorrhage [Fatal]
  - Pancytopenia [Fatal]
  - Thrombocytopenia [Fatal]
  - Gastrointestinal haemorrhage [Unknown]
  - Epistaxis [Unknown]
  - Hepatic encephalopathy [Unknown]
  - Anaemia [Unknown]
  - Hyperammonaemia [Unknown]
